FAERS Safety Report 5129761-3 (Version None)
Quarter: 2006Q4

REPORT INFORMATION
  Report Type: 
  Country: None (occurrence: None)
  Receive Date: 20061018
  Receipt Date: 20060814
  Transmission Date: 20070319
  Serious: Yes (Hospitalization)
  Sender: FDA-Public Use
  Company Number: US-GLAXOSMITHKLINE-A0616533A

PATIENT
  Sex: Female

DRUGS (2)
  1. LEXIVA [Suspect]
     Indication: HIV INFECTION
     Route: 048
     Dates: start: 20050701, end: 20051101
  2. OTHER MEDICATIONS [Concomitant]

REACTIONS (1)
  - DRUG INEFFECTIVE [None]
